FAERS Safety Report 23804286 (Version 2)
Quarter: 2024Q2

REPORT INFORMATION
  Report Type: Spontaneous
  Country: JP (occurrence: JP)
  Receive Date: 20240501
  Receipt Date: 20240529
  Transmission Date: 20240716
  Serious: Yes (Other)
  Sender: FDA-Public Use
  Company Number: JP-Eisai-202315840_LEN-EC_P_1

PATIENT
  Age: 32 Year
  Sex: Female

DRUGS (3)
  1. LENVIMA [Suspect]
     Active Substance: LENVATINIB
     Indication: Endometrial cancer
     Dosage: 1 COURSES
     Route: 048
     Dates: start: 20240305
  2. LENVIMA [Suspect]
     Active Substance: LENVATINIB
     Dosage: 1 COURSES
     Route: 048
     Dates: start: 202404
  3. KEYTRUDA [Suspect]
     Active Substance: PEMBROLIZUMAB
     Indication: Endometrial cancer
     Dosage: 1 COURSES
     Route: 041
     Dates: start: 20240305

REACTIONS (3)
  - Adrenal insufficiency [Recovered/Resolved]
  - Blood glucose fluctuation [Unknown]
  - Fatigue [Recovering/Resolving]

NARRATIVE: CASE EVENT DATE: 20240101
